FAERS Safety Report 8739672 (Version 2)
Quarter: 2012Q4

REPORT INFORMATION
  Report Type: 
  Country: US (occurrence: US)
  Receive Date: 20120823
  Receipt Date: 20120912
  Transmission Date: 20130627
  Serious: No
  Sender: FDA-Public Use
  Company Number: US-PFIZER INC-2012203543

PATIENT
  Age: 59 Year
  Sex: Female
  Weight: 83.9 kg

DRUGS (4)
  1. SUTENT [Suspect]
     Indication: METASTATIC RENAL CELL CARCINOMA
     Dosage: 50 mg, 1x/day
     Dates: start: 20120815, end: 20120901
  2. LOSARTAN [Concomitant]
     Dosage: 100 mg, daily
  3. AMLODIPINE [Concomitant]
     Dosage: 5 mg, daily
  4. LISINOPRIL [Concomitant]
     Dosage: 40 mg, daily

REACTIONS (6)
  - Dizziness [Unknown]
  - Pruritus [Unknown]
  - Nausea [Unknown]
  - Oral pain [Recovering/Resolving]
  - Dysphagia [Unknown]
  - Eating disorder [Recovering/Resolving]
